FAERS Safety Report 12503941 (Version 1)
Quarter: 2016Q2

REPORT INFORMATION
  Report Type: Report from Study
  Country: FR (occurrence: FR)
  Receive Date: 20160628
  Receipt Date: 20160628
  Transmission Date: 20160815
  Serious: Yes (Other)
  Sender: FDA-Public Use
  Company Number: FR-ROCHE-GNE311599

PATIENT
  Age: 13 Year
  Sex: Female

DRUGS (4)
  1. SOMATROPIN [Suspect]
     Active Substance: SOMATROPIN
     Indication: FAILURE TO THRIVE
     Dosage: 10 MG/ 2 ML
     Route: 058
  2. DECAPEPTYL (ACETATE) [Concomitant]
     Active Substance: TRIPTORELIN ACETATE
     Route: 042
     Dates: start: 20040101
  3. SOMATROPIN [Suspect]
     Active Substance: SOMATROPIN
     Indication: GROWTH HORMONE DEFICIENCY
     Dosage: 10 MG/ 2 ML
     Route: 058
     Dates: start: 20080428
  4. LEVOTHYROX [Concomitant]
     Active Substance: LEVOTHYROXINE
     Indication: PRODUCT USED FOR UNKNOWN INDICATION
     Route: 048
     Dates: start: 20091118

REACTIONS (2)
  - Fall [Unknown]
  - Radius fracture [Recovered/Resolved]

NARRATIVE: CASE EVENT DATE: 20101114
